FAERS Safety Report 7798584-9 (Version None)
Quarter: 2011Q4

REPORT INFORMATION
  Report Type: 
  Country: None (occurrence: None)
  Receive Date: 20111005
  Receipt Date: 20110927
  Transmission Date: 20120403
  Serious: Yes (Hospitalization)
  Sender: FDA-Public Use
  Company Number: IT-ROCHE-749510

PATIENT
  Sex: Male
  Weight: 83 kg

DRUGS (5)
  1. ENALAPRIL MALEATE [Concomitant]
     Dates: start: 20100929, end: 20101116
  2. CCNU [Concomitant]
     Dates: start: 20110216, end: 20110216
  3. AVASTIN [Suspect]
     Indication: GLIOBLASTOMA
     Dosage: LAST DOSE PRIOR TO SAE: 18 NOVEMBER 2010. PATIENT WAS EXCLUDED FROM THE STUDY ON 01 DECEMBER 2010.
     Route: 042
     Dates: start: 20100408, end: 20101118
  4. TEMODAL [Concomitant]
     Dates: start: 20101202, end: 20101216
  5. TEMOZOLOMIDE [Suspect]
     Indication: GLIOBLASTOMA
     Dosage: FREQUENCY: MONTHLY. LAST DOSE PRIOR TO SAE: 8 NOV 2010; PATIENT EXCLUDED FROM STUDY ON 01 DEC 2010.
     Route: 048
     Dates: start: 20100408, end: 20101108

REACTIONS (2)
  - CONVULSION [None]
  - CONFUSIONAL STATE [None]
